FAERS Safety Report 8452602 (Version 4)
Quarter: 2013Q2

REPORT INFORMATION
  Report Type: Spontaneous
  Country: US (occurrence: US)
  Receive Date: 20120312
  Receipt Date: 20130627
  Transmission Date: 20140414
  Serious: Yes (Disabling)
  Sender: FDA-Public Use
  Company Number: US-PFIZER INC-2012061272

PATIENT
  Age: 47 Year
  Sex: Female

DRUGS (4)
  1. CELEBREX [Suspect]
     Dosage: 200, QD
  2. PROTONIX [Suspect]
     Dosage: 40, 1X/DAY (QD)
  3. WELLBUTRIN [Concomitant]
     Dosage: 150 BID
  4. RITALIN [Concomitant]
     Dosage: UNK

REACTIONS (1)
  - General physical health deterioration [Unknown]
